FAERS Safety Report 19110356 (Version 3)
Quarter: 2021Q3

REPORT INFORMATION
  Report Type: Report from Study
  Country: US (occurrence: US)
  Receive Date: 20210408
  Receipt Date: 20210705
  Transmission Date: 20211014
  Serious: Yes (Hospitalization, Other)
  Sender: FDA-Public Use
  Company Number: US-BIOVITRUM-2021US3243

PATIENT
  Age: 15 Year
  Sex: Male

DRUGS (2)
  1. KINERET [Suspect]
     Active Substance: ANAKINRA
     Indication: COVID-19
     Route: 058
     Dates: start: 20210319
  2. KINERET [Suspect]
     Active Substance: ANAKINRA
     Indication: MULTISYSTEM INFLAMMATORY SYNDROME IN CHILDREN
     Route: 058
     Dates: start: 20210318, end: 20210621

REACTIONS (6)
  - Injection site pain [Unknown]
  - Scar [Unknown]
  - Injection site mass [Unknown]
  - Injection site bruising [Unknown]
  - Escherichia infection [Unknown]
  - Off label use [Recovered/Resolved]

NARRATIVE: CASE EVENT DATE: 20210318
